FAERS Safety Report 6811462-4 (Version None)
Quarter: 2010Q2

REPORT INFORMATION
  Report Type: 
  Country: None (occurrence: None)
  Receive Date: 20100629
  Receipt Date: 20100629
  Transmission Date: 20101027
  Serious: Yes (Other)
  Sender: FDA-Public Use
  Company Number: None

PATIENT
  Age: 81 Year
  Sex: Female
  Weight: 70.3075 kg

DRUGS (1)
  1. CIALIS [Suspect]
     Indication: PROMOTION OF PERIPHERAL CIRCULATION
     Dosage: ONE TABLET 2.5MG  PO
     Route: 048
     Dates: start: 20100222, end: 20100225

REACTIONS (1)
  - BLINDNESS [None]
